FAERS Safety Report 20825485 (Version 3)
Quarter: 2023Q2

REPORT INFORMATION
  Report Type: Spontaneous
  Country: DE (occurrence: DE)
  Receive Date: 20220513
  Receipt Date: 20230427
  Transmission Date: 20230722
  Serious: Yes (Other)
  Sender: FDA-Public Use
  Company Number: DE-MYLANLABS-2022M1030500

PATIENT
  Age: 27 Year
  Sex: Female
  Weight: 93 kg

DRUGS (4)
  1. ESCITALOPRAM [Suspect]
     Active Substance: ESCITALOPRAM OXALATE
     Indication: Product used for unknown indication
     Dosage: 15 MILLIGRAM
     Route: 065
     Dates: start: 202006
  2. LEVOTHYROXINE SODIUM [Suspect]
     Active Substance: LEVOTHYROXINE SODIUM
     Indication: Product used for unknown indication
     Dosage: 75 MICROGRAM
     Route: 065
     Dates: start: 201507
  3. Eliza [Concomitant]
     Indication: Hormonal contraception
     Dosage: UNK
     Route: 065
     Dates: start: 201502
  4. DROSPIRENONE\ETHINYL ESTRADIOL [Concomitant]
     Active Substance: DROSPIRENONE\ETHINYL ESTRADIOL
     Indication: Hormonal contraception
     Dosage: UNK
     Route: 048
     Dates: start: 20200201

REACTIONS (4)
  - Thrombosis [Not Recovered/Not Resolved]
  - Deep vein thrombosis [Not Recovered/Not Resolved]
  - Muscular weakness [Unknown]
  - Limb discomfort [Unknown]

NARRATIVE: CASE EVENT DATE: 20211004
